FAERS Safety Report 7620301-3 (Version None)
Quarter: 2011Q3

REPORT INFORMATION
  Report Type: 
  Country: None (occurrence: None)
  Receive Date: 20110719
  Receipt Date: 20110713
  Transmission Date: 20111222
  Serious: Yes (Other)
  Sender: FDA-Public Use
  Company Number: FR-ABBOTT-11P-056-0838731-00

PATIENT
  Sex: Female

DRUGS (3)
  1. RITONAVIR [Suspect]
     Indication: HIV INFECTION
     Route: 048
     Dates: start: 20101206, end: 20101217
  2. REYATAZ [Suspect]
     Indication: HIV INFECTION
     Route: 048
     Dates: start: 20101206, end: 20101217
  3. ABACAVIR SULFATE AND LAMIVUDINE [Suspect]
     Indication: HIV INFECTION
     Dosage: 600 MG/300 MG
     Dates: start: 20101206, end: 20101217

REACTIONS (3)
  - OROPHARYNGEAL PAIN [None]
  - GENITAL EROSION [None]
  - RASH MACULO-PAPULAR [None]
